FAERS Safety Report 6914281-3 (Version None)
Quarter: 2010Q3

REPORT INFORMATION
  Report Type: 
  Country: None (occurrence: None)
  Receive Date: 20100809
  Receipt Date: 20100803
  Transmission Date: 20110219
  Serious: Yes (Other)
  Sender: FDA-Public Use
  Company Number: B0665763A

PATIENT
  Sex: Female

DRUGS (8)
  1. TYKERB [Suspect]
     Indication: BREAST CANCER
     Route: 048
     Dates: start: 20100101
  2. XELODA [Concomitant]
     Route: 048
     Dates: start: 20100101
  3. RINDERON [Concomitant]
     Dosage: .5IUAX PER DAY
     Route: 048
     Dates: start: 20100713
  4. THYRADIN [Concomitant]
     Dosage: 1.5IUAX PER DAY
     Route: 048
     Dates: start: 20100713
  5. MECOBALAMIN [Concomitant]
     Dosage: 3IUAX PER DAY
     Route: 048
     Dates: start: 20100713
  6. JUVELA [Concomitant]
     Dosage: 3IUAX PER DAY
     Route: 048
     Dates: start: 20100713
  7. PROTECADIN [Concomitant]
     Dosage: 2IUAX PER DAY
     Route: 048
     Dates: start: 20100713
  8. DOGMATYL [Concomitant]
     Dosage: 2IUAX PER DAY
     Route: 048
     Dates: start: 20100713

REACTIONS (2)
  - DEMENTIA [None]
  - DISORIENTATION [None]
